FAERS Safety Report 8616145 (Version 3)
Quarter: 2013Q1

REPORT INFORMATION
  Report Type: Report from Study
  Country: CA (occurrence: CA)
  Receive Date: 20120614
  Receipt Date: 20130122
  Transmission Date: 20140127
  Serious: Yes (Hospitalization)
  Sender: FDA-Public Use
  Company Number: CA-ROCHE-1077500

PATIENT
  Sex: Female

DRUGS (8)
  1. ZELBORAF [Suspect]
     Indication: METASTATIC MALIGNANT MELANOMA
     Route: 048
     Dates: start: 20120430, end: 2012
  2. ZELBORAF [Suspect]
     Route: 048
     Dates: start: 20120730, end: 201301
  3. METOCLOPRAMIDE [Concomitant]
  4. LIPITOR [Concomitant]
  5. DOCUSATE [Concomitant]
  6. PAROXETINE [Concomitant]
  7. SENNOSIDES [Concomitant]
  8. NEXIUM [Concomitant]

REACTIONS (2)
  - Intestinal perforation [Recovering/Resolving]
  - Metastases to central nervous system [Unknown]
